FAERS Safety Report 22060719 (Version 1)
Quarter: 2023Q1

REPORT INFORMATION
  Report Type: Spontaneous
  Country: CN (occurrence: CN)
  Receive Date: 20230303
  Receipt Date: 20230303
  Transmission Date: 20230417
  Serious: Yes (Other)
  Sender: FDA-Public Use
  Company Number: CN-PFIZER INC-PV202300040244

PATIENT
  Age: 47 Year
  Sex: Male

DRUGS (3)
  1. TYGACIL [Suspect]
     Active Substance: TIGECYCLINE
     Indication: Viral myocarditis
     Dosage: 100 MG, 1X/DAY
     Route: 041
     Dates: start: 20230112, end: 20230228
  2. VFEND [Suspect]
     Active Substance: VORICONAZOLE
     Indication: Viral myocarditis
     Dosage: 0.2 G, 2X/DAY
     Route: 041
     Dates: start: 20230116, end: 20230129
  3. CILASTATIN SODIUM\IMIPENEM [Suspect]
     Active Substance: CILASTATIN SODIUM\IMIPENEM
     Indication: Viral myocarditis
     Dosage: 1000 MG, 3X/DAY
     Route: 041
     Dates: start: 20230113, end: 20230124

REACTIONS (2)
  - Clostridium difficile colitis [Unknown]
  - Off label use [Unknown]

NARRATIVE: CASE EVENT DATE: 20230112
